FAERS Safety Report 6704115-4 (Version None)
Quarter: 2010Q2

REPORT INFORMATION
  Report Type: 
  Country: None (occurrence: None)
  Receive Date: 20100430
  Receipt Date: 20100420
  Transmission Date: 20101027
  Serious: Yes (Hospitalization)
  Sender: FDA-Public Use
  Company Number: US-JNJFOC-20100406629

PATIENT
  Age: 89 Year
  Sex: Female
  Weight: 64.86 kg

DRUGS (3)
  1. EXTRA STRENGTH TYLENOL [Suspect]
     Route: 048
  2. EXTRA STRENGTH TYLENOL [Suspect]
     Indication: MUSCULOSKELETAL PAIN
     Route: 048
  3. ATENOLOL [Concomitant]

REACTIONS (3)
  - DEHYDRATION [None]
  - DIZZINESS [None]
  - PRODUCT QUALITY ISSUE [None]
